FAERS Safety Report 24183771 (Version 1)
Quarter: 2024Q3

REPORT INFORMATION
  Report Type: Spontaneous
  Country: CA (occurrence: CA)
  Receive Date: 20240807
  Receipt Date: 20240807
  Transmission Date: 20241017
  Serious: Yes (Hospitalization)
  Sender: PFIZER
  Company Number: CA-PFIZER INC-202400230271

PATIENT
  Age: 25 Year
  Sex: Female
  Weight: 58 kg

DRUGS (13)
  1. ABROCITINIB [Suspect]
     Active Substance: ABROCITINIB
     Indication: Dermatitis atopic
     Dosage: 100 MG, DAILY
     Route: 048
  2. MARVELON [Suspect]
     Active Substance: DESOGESTREL\ETHINYL ESTRADIOL
     Indication: Contraception
     Dosage: 1 DF, DAILY
  3. ATARAX [Concomitant]
     Active Substance: HYDROXYZINE HYDROCHLORIDE
     Indication: Rhinitis allergic
     Route: 048
  4. AVENA SATIVA POLLEN [Concomitant]
     Active Substance: AVENA SATIVA POLLEN
     Indication: Dermatitis atopic
     Dosage: UNK
     Route: 065
  5. AVENA SATIVA POLLEN [Concomitant]
     Active Substance: AVENA SATIVA POLLEN
     Dosage: UNK
     Route: 061
  6. BENADRYL [Concomitant]
     Active Substance: DIPHENHYDRAMINE HYDROCHLORIDE
     Indication: Rhinitis allergic
     Route: 048
  7. CLOTRIMAZOLE [Concomitant]
     Active Substance: CLOTRIMAZOLE
     Indication: Vaginal infection
     Route: 061
  8. FLOVENT [Concomitant]
     Active Substance: FLUTICASONE PROPIONATE
     Indication: Asthma
     Dosage: UNK
     Route: 055
  9. LORATADINE [Concomitant]
     Active Substance: LORATADINE
     Indication: Rhinitis allergic
     Route: 048
  10. LUBRIDERM [PARAFFIN] [Concomitant]
     Indication: Xerosis
     Dosage: UNK, 2X/DAY
     Route: 065
  11. MOMETASONE FUROATE MONOHYDRATE [Concomitant]
     Active Substance: MOMETASONE FUROATE MONOHYDRATE
     Indication: Rhinitis allergic
     Dosage: UNK
     Route: 045
  12. OLOPATADINE HYDROCHLORIDE [Concomitant]
     Active Substance: OLOPATADINE HYDROCHLORIDE
     Indication: Rhinitis allergic
     Route: 047
  13. ALBUTEROL SULFATE [Concomitant]
     Active Substance: ALBUTEROL SULFATE
     Indication: Asthma
     Route: 055

REACTIONS (4)
  - Asthma [Recovered/Resolved]
  - Bronchitis [Recovered/Resolved]
  - Nasopharyngitis [Recovered/Resolved]
  - Rhinorrhoea [Recovered/Resolved]
